FAERS Safety Report 18336224 (Version 1)
Quarter: 2020Q4

REPORT INFORMATION
  Report Type: Spontaneous
  Country: US (occurrence: US)
  Receive Date: 20201001
  Receipt Date: 20201001
  Transmission Date: 20210113
  Serious: No
  Sender: FDA-Public Use
  Company Number: US-PFIZER INC-2020379892

PATIENT
  Age: 63 Year
  Sex: Female
  Weight: 85.28 kg

DRUGS (2)
  1. EMGALITY [Concomitant]
     Active Substance: GALCANEZUMAB-GNLM
     Indication: MIGRAINE
     Dosage: UNK, MONTHLY
  2. CHANTIX [Suspect]
     Active Substance: VARENICLINE TARTRATE
     Indication: SMOKING CESSATION THERAPY
     Dosage: UNK

REACTIONS (1)
  - Memory impairment [Unknown]
